FAERS Safety Report 16125844 (Version 1)
Quarter: 2019Q1

REPORT INFORMATION
  Report Type: Spontaneous
  Country: FR (occurrence: FR)
  Receive Date: 20190328
  Receipt Date: 20190328
  Transmission Date: 20190418
  Serious: Yes (Hospitalization, Other)
  Sender: FDA-Public Use
  Company Number: FR-AUROBINDO-AUR-APL-2019-016303

PATIENT

DRUGS (4)
  1. ASCORBIC ACID. [Suspect]
     Active Substance: ASCORBIC ACID
     Indication: INFLUENZA LIKE ILLNESS
     Dosage: NON PR?CIS?E
     Route: 048
     Dates: start: 20190125, end: 20190130
  2. EXOMUC [Suspect]
     Active Substance: ACETYLCYSTEINE
     Indication: INFLUENZA LIKE ILLNESS
     Dosage: UNK, UNSPECIFIED
     Route: 048
     Dates: start: 20190125, end: 20190130
  3. DOLIPRANE [Suspect]
     Active Substance: ACETAMINOPHEN
     Indication: INFLUENZA LIKE ILLNESS
     Dosage: UNK, UNSPECIFIED
     Route: 048
     Dates: start: 20190125
  4. IBUPROFEN. [Suspect]
     Active Substance: IBUPROFEN
     Indication: INFLUENZA LIKE ILLNESS
     Dosage: UNK, UNSPECIFIED
     Route: 048
     Dates: start: 20190125, end: 20190130

REACTIONS (1)
  - Stevens-Johnson syndrome [Recovered/Resolved]

NARRATIVE: CASE EVENT DATE: 20190128
